FAERS Safety Report 9245861 (Version 2)
Quarter: 2013Q2

REPORT INFORMATION
  Report Type: Spontaneous
  Country: US (occurrence: US)
  Receive Date: 20130422
  Receipt Date: 20130515
  Transmission Date: 20140414
  Serious: Yes (Hospitalization)
  Sender: FDA-Public Use
  Company Number: US-BRISTOL-MYERS SQUIBB COMPANY-17478058

PATIENT
  Age: 59 Year
  Sex: Male

DRUGS (4)
  1. ELIQUIS [Suspect]
     Indication: ATRIAL FIBRILLATION
     Dosage: STOPPED ON 12-MAR-2013?RESTARTED FROM 18-MAR-2013
     Route: 048
     Dates: start: 20130215
  2. ASPIRIN [Suspect]
  3. PAXIL [Suspect]
  4. PRAVACHOL [Concomitant]

REACTIONS (4)
  - Upper gastrointestinal haemorrhage [Recovered/Resolved]
  - Haemorrhagic anaemia [Recovered/Resolved]
  - Gastric ulcer [Recovered/Resolved]
  - Atrial flutter [Recovered/Resolved]
